FAERS Safety Report 6609473-7 (Version None)
Quarter: 2010Q1

REPORT INFORMATION
  Report Type: 
  Country: None (occurrence: None)
  Receive Date: 20100302
  Receipt Date: 20100219
  Transmission Date: 20100710
  Serious: Yes (Other)
  Sender: FDA-Public Use
  Company Number: US-JNJFOC-20091101948

PATIENT
  Sex: Male
  Weight: 87.54 kg

DRUGS (3)
  1. INVEGA [Suspect]
     Indication: BIPOLAR DISORDER
     Route: 048
  2. AMBIEN [Concomitant]
     Indication: INSOMNIA
  3. KLONOPIN [Concomitant]
     Indication: ANXIETY

REACTIONS (1)
  - WEIGHT INCREASED [None]
